FAERS Safety Report 4996931-4 (Version None)
Quarter: 2006Q2

REPORT INFORMATION
  Report Type: 
  Country: None (occurrence: None)
  Receive Date: 20060509
  Receipt Date: 20060503
  Transmission Date: 20061013
  Serious: Yes (Hospitalization)
  Sender: FDA-Public Use
  Company Number: FR-GLAXOSMITHKLINE-B0422522A

PATIENT
  Age: 69 Year
  Sex: Male

DRUGS (15)
  1. AUGMENTIN '125' [Suspect]
     Dosage: 1G TWICE PER DAY
     Route: 042
     Dates: start: 20060317, end: 20060326
  2. METHOTREXATE [Suspect]
     Dosage: 20MG WEEKLY
     Route: 030
     Dates: start: 20060310, end: 20060330
  3. OFLOCET [Suspect]
     Indication: PYREXIA
     Dosage: 200MG TWICE PER DAY
     Route: 048
     Dates: start: 20060318, end: 20060330
  4. MOPRAL [Concomitant]
     Route: 065
  5. HYPERIUM [Concomitant]
     Route: 065
  6. ESIDRIX [Concomitant]
     Route: 065
  7. RENITEC [Concomitant]
     Route: 065
  8. LIPANTHYL [Concomitant]
     Route: 065
  9. ATARAX [Concomitant]
     Route: 065
  10. CACIT D3 [Concomitant]
     Route: 065
  11. CORTANCYL [Concomitant]
     Route: 065
  12. NOVONORM [Concomitant]
     Route: 065
  13. DIFFU K [Concomitant]
     Route: 065
  14. TENORMIN [Concomitant]
     Route: 065
  15. CORTICOID [Concomitant]
     Route: 065
     Dates: start: 20050608

REACTIONS (9)
  - COLITIS ULCERATIVE [None]
  - DIARRHOEA [None]
  - HAEMOGLOBIN S DECREASED [None]
  - INFLAMMATION [None]
  - LIPASE INCREASED [None]
  - PLATELET COUNT DECREASED [None]
  - RENAL FAILURE [None]
  - RETICULOCYTE COUNT DECREASED [None]
  - WHITE BLOOD CELL COUNT DECREASED [None]
